FAERS Safety Report 14057811 (Version 3)
Quarter: 2017Q4

REPORT INFORMATION
  Report Type: Spontaneous
  Country: JP (occurrence: JP)
  Receive Date: 20171006
  Receipt Date: 20171027
  Transmission Date: 20180321
  Serious: Yes (Hospitalization, Other)
  Sender: FDA-Public Use
  Company Number: JP-GLAXOSMITHKLINE-JP2017JPN152452

PATIENT
  Age: 79 Year
  Sex: Female

DRUGS (2)
  1. ZOVIRAX [Suspect]
     Active Substance: ACYCLOVIR
     Indication: HERPES ZOSTER
     Dosage: 250 MG, TID
     Route: 041
     Dates: start: 20170911, end: 20170918
  2. FLORID [Concomitant]
     Active Substance: MICONAZOLE
     Dosage: UNK

REACTIONS (1)
  - Oesophageal candidiasis [Recovering/Resolving]
